FAERS Safety Report 8951064 (Version 1)
Quarter: 2012Q4

REPORT INFORMATION
  Report Type: 
  Country: US (occurrence: US)
  Receive Date: 20121207
  Receipt Date: 20121207
  Transmission Date: 20130627
  Serious: Yes (Death, Hospitalization)
  Sender: FDA-Public Use
  Company Number: PHEH2012US023958

PATIENT
  Age: 48 Year
  Sex: Female

DRUGS (1)
  1. AFINITOR [Suspect]
     Indication: BREAST CANCER
     Dosage: 10 mg, QD
     Route: 048

REACTIONS (5)
  - Death [Fatal]
  - Pneumonia [Unknown]
  - Breast cancer [Unknown]
  - Malignant neoplasm progression [None]
  - Convulsion [Unknown]
